FAERS Safety Report 25127812 (Version 1)
Quarter: 2025Q1

REPORT INFORMATION
  Report Type: Spontaneous
  Country: SG (occurrence: SG)
  Receive Date: 20250327
  Receipt Date: 20250327
  Transmission Date: 20250409
  Serious: Yes (Death, Other)
  Sender: ROCHE
  Company Number: SG-ROCHE-10000237668

PATIENT
  Age: 31 Year
  Sex: Female

DRUGS (3)
  1. RITUXIMAB [Suspect]
     Active Substance: RITUXIMAB
     Indication: Arthritis
     Route: 042
  2. PREDNISOLONE [Suspect]
     Active Substance: PREDNISOLONE
     Indication: Arthritis
     Route: 065
  3. SODIUM BENZOATE [Concomitant]
     Active Substance: SODIUM BENZOATE
     Route: 042

REACTIONS (5)
  - Escherichia infection [Unknown]
  - Klebsiella infection [Unknown]
  - Encephalitis [Unknown]
  - Ureaplasma infection [Fatal]
  - Hyperammonaemic encephalopathy [Fatal]
